FAERS Safety Report 10054757 (Version 2)
Quarter: 2014Q2

REPORT INFORMATION
  Report Type: Spontaneous
  Country: US (occurrence: US)
  Receive Date: 20140402
  Receipt Date: 20140408
  Transmission Date: 20141212
  Serious: No
  Sender: FDA-Public Use
  Company Number: US-009507513-1404USA000244

PATIENT
  Sex: Female

DRUGS (1)
  1. COMPLEX 15 FACE CREAM [Suspect]
     Indication: PRODUCT USED FOR UNKNOWN INDICATION
     Dosage: UNK, UNKNOWN
     Route: 061

REACTIONS (2)
  - Circumstance or information capable of leading to medication error [Unknown]
  - Product expiration date issue [Unknown]
